FAERS Safety Report 14937680 (Version 1)
Quarter: 2018Q2

REPORT INFORMATION
  Report Type: Report from Study
  Country: CA (occurrence: CA)
  Receive Date: 20180525
  Receipt Date: 20180525
  Transmission Date: 20180711
  Serious: Yes (Hospitalization, Other)
  Sender: FDA-Public Use
  Company Number: PHHO2017CA002872

PATIENT
  Sex: Female
  Weight: 63.7 kg

DRUGS (1)
  1. TRAMETINIB [Suspect]
     Active Substance: TRAMETINIB
     Indication: PLASMA CELL MYELOMA
     Dosage: 2 MG, QD
     Route: 048
     Dates: start: 20150210, end: 20150422

REACTIONS (8)
  - Osteomyelitis [Recovered/Resolved]
  - Blood creatinine increased [Recovered/Resolved]
  - Myocardial infarction [Recovered/Resolved]
  - Hypocalcaemia [Not Recovered/Not Resolved]
  - Anaemia [Not Recovered/Not Resolved]
  - Acute kidney injury [Not Recovered/Not Resolved]
  - Supraventricular tachycardia [Recovered/Resolved]
  - Troponin T increased [Recovered/Resolved]

NARRATIVE: CASE EVENT DATE: 20150414
